FAERS Safety Report 5900000-6 (Version None)
Quarter: 2008Q3

REPORT INFORMATION
  Report Type: 
  Country: None (occurrence: None)
  Receive Date: 20080925
  Receipt Date: 20080925
  Transmission Date: 20090109
  Serious: No
  Sender: FDA-Public Use
  Company Number: None

PATIENT
  Age: 59 Year
  Sex: Male
  Weight: 117.57 kg

DRUGS (2)
  1. SPIRONOLACTONE [Suspect]
     Indication: ASCITES
     Dosage: 100 MG EVERYDAY PO
     Route: 048
     Dates: start: 20080514, end: 20080916
  2. SPIRONOLACTONE [Suspect]
     Indication: HEPATIC CIRRHOSIS
     Dosage: 100 MG EVERYDAY PO
     Route: 048
     Dates: start: 20080514, end: 20080916

REACTIONS (1)
  - GYNAECOMASTIA [None]
